FAERS Safety Report 8187561-4 (Version None)
Quarter: 2012Q1

REPORT INFORMATION
  Report Type: 
  Country: None (occurrence: None)
  Receive Date: 20120306
  Receipt Date: 20120301
  Transmission Date: 20120608
  Serious: Yes (Hospitalization, Other)
  Sender: FDA-Public Use
  Company Number: VE-PFIZER INC-2012049334

PATIENT
  Age: 62 Year
  Sex: Female

DRUGS (2)
  1. ZYVOX [Suspect]
     Indication: OSTEOMYELITIS
     Dosage: 600 MG, 2X/DAY
     Route: 042
     Dates: start: 20111227, end: 20120101
  2. ZYVOX [Suspect]
     Dosage: 600 MG, 2X/DAY
     Route: 048
     Dates: start: 20120101, end: 20120218

REACTIONS (4)
  - ASTHENIA [None]
  - CARDIAC FAILURE [None]
  - MOUTH ULCERATION [None]
  - BONE MARROW FAILURE [None]
